FAERS Safety Report 4493476-5 (Version None)
Quarter: 2004Q4

REPORT INFORMATION
  Report Type: 
  Country: None (occurrence: None)
  Receive Date: 20041105
  Receipt Date: 20041021
  Transmission Date: 20050328
  Serious: Yes (Hospitalization)
  Sender: FDA-Public Use
  Company Number: FR-JNJFOC-20041003296

PATIENT
  Age: 62 Year
  Sex: Male
  Weight: 68 kg

DRUGS (4)
  1. RISPERDAL [Suspect]
     Route: 049
  2. HALDOL DECANOAS [Suspect]
     Route: 030
  3. DEPAMIDE [Suspect]
     Indication: DRUG USE FOR UNKNOWN INDICATION
     Dosage: DOSE= 3 CP PER DAY
     Route: 049
  4. LEPTICUR [Concomitant]

REACTIONS (14)
  - BLOOD GLUCOSE INCREASED [None]
  - BLOOD POTASSIUM DECREASED [None]
  - BLOOD SODIUM DECREASED [None]
  - BLOOD UREA DECREASED [None]
  - CONVULSION [None]
  - CREATINE URINE ABNORMAL [None]
  - DISORIENTATION [None]
  - HAEMOGLOBIN DECREASED [None]
  - HYPONATRAEMIA [None]
  - POLYDIPSIA [None]
  - THIRST [None]
  - UREA URINE ABNORMAL [None]
  - URINE POTASSIUM ABNORMAL [None]
  - WEIGHT INCREASED [None]
